FAERS Safety Report 8676198 (Version 3)
Quarter: 2013Q2

REPORT INFORMATION
  Report Type: Spontaneous
  Country: FR (occurrence: FR)
  Receive Date: 20120720
  Receipt Date: 20130528
  Transmission Date: 20140414
  Serious: Yes (Other)
  Sender: FDA-Public Use
  Company Number: FR-009507513-1207FRA000904

PATIENT
  Age: 72 Year
  Sex: Male

DRUGS (9)
  1. SINGULAIR [Suspect]
     Indication: PRODUCT USED FOR UNKNOWN INDICATION
     Dosage: UNK
  2. POLARAMINE [Suspect]
     Indication: PRODUCT USED FOR UNKNOWN INDICATION
     Dosage: UNK
     Route: 048
     Dates: end: 20110415
  3. VFEND [Suspect]
     Indication: LUNG DISORDER
     Dosage: 50 MG, BID
     Route: 048
     Dates: start: 201111
  4. MABTHERA [Suspect]
     Indication: LYMPHOMA
     Dosage: UNK
     Route: 042
     Dates: end: 20110415
  5. OXALIPLATIN [Suspect]
     Indication: LYMPHOMA
     Dosage: UNK
     Route: 042
     Dates: end: 20101210
  6. CYTARABINE [Suspect]
     Indication: LYMPHOMA
     Dosage: UNK
     Route: 042
     Dates: end: 20101210
  7. METHYLPREDNISOLONE [Suspect]
     Indication: PRODUCT USED FOR UNKNOWN INDICATION
     Dosage: UNK
     Route: 042
     Dates: end: 20110415
  8. PLITICAN [Suspect]
     Indication: LYMPHOMA
     Dosage: UNK
     Route: 042
     Dates: end: 20101210
  9. ZOFRAN [Suspect]
     Indication: LUNG DISORDER
     Dosage: UNK
     Route: 048
     Dates: end: 20101210

REACTIONS (3)
  - Gynaecomastia [Unknown]
  - Hot flush [Unknown]
  - Hypogonadism [Unknown]
